FAERS Safety Report 5448270-5 (Version None)
Quarter: 2007Q3

REPORT INFORMATION
  Report Type: 
  Country: None (occurrence: None)
  Receive Date: 20070911
  Receipt Date: 20070904
  Transmission Date: 20080115
  Serious: Yes (Hospitalization)
  Sender: FDA-Public Use
  Company Number: PHBS2007SI14627

PATIENT
  Age: 60 Year
  Sex: Male
  Weight: 74 kg

DRUGS (2)
  1. BACLOFEN [Suspect]
     Dosage: 25 MG, Q12H
     Route: 048
  2. INSULIN [Suspect]
     Indication: DIABETES MELLITUS

REACTIONS (25)
  - ANURIA [None]
  - BLOOD CREATININE INCREASED [None]
  - BRAIN SCAN ABNORMAL [None]
  - COMA [None]
  - CREATININE RENAL CLEARANCE DECREASED [None]
  - DEPRESSED LEVEL OF CONSCIOUSNESS [None]
  - DRUG TOXICITY [None]
  - DYSPNOEA [None]
  - GLASGOW COMA SCALE ABNORMAL [None]
  - HAEMODIALYSIS [None]
  - HYPERTENSION [None]
  - HYPOTENSION [None]
  - HYPOTONIA [None]
  - HYPOVENTILATION [None]
  - INFECTION [None]
  - OLIGURIA [None]
  - OVERDOSE [None]
  - PNEUMONIA [None]
  - PO2 DECREASED [None]
  - PROCALCITONIN INCREASED [None]
  - PYREXIA [None]
  - RENAL FAILURE ACUTE [None]
  - RESPIRATORY RATE INCREASED [None]
  - SOMNOLENCE [None]
  - WHITE BLOOD CELL COUNT INCREASED [None]
